FAERS Safety Report 8446386-2 (Version None)
Quarter: 2012Q2

REPORT INFORMATION
  Report Type: 
  Country: None (occurrence: None)
  Receive Date: 20120618
  Receipt Date: 20120123
  Transmission Date: 20120825
  Serious: No
  Sender: FDA-Public Use
  Company Number: US-TEVA-2011006185

PATIENT
  Weight: 66.738 kg

DRUGS (6)
  1. GRAVIOLA [Concomitant]
  2. LORAZEPAM [Concomitant]
  3. CYMBALTA [Concomitant]
  4. FENTANYL CITRATE [Suspect]
     Indication: BREAST CANCER
     Route: 002
     Dates: start: 20110409, end: 20111207
  5. PHENERGAN [Concomitant]
  6. AMBIEN [Concomitant]

REACTIONS (6)
  - ANXIETY [None]
  - DEPRESSED MOOD [None]
  - INSOMNIA [None]
  - RESTLESS LEGS SYNDROME [None]
  - RESTLESSNESS [None]
  - INTENTIONAL DRUG MISUSE [None]
